FAERS Safety Report 15307980 (Version 3)
Quarter: 2021Q3

REPORT INFORMATION
  Report Type: Report from Study
  Country: US (occurrence: US)
  Receive Date: 20180822
  Receipt Date: 20210918
  Transmission Date: 20211014
  Serious: Yes (Other)
  Sender: FDA-Public Use
  Company Number: US-SHIRE-US201830728

PATIENT
  Sex: Female

DRUGS (1)
  1. HUMAN IMMUNOGLOBULIN; HYALURONIDASE [Suspect]
     Active Substance: HUMAN IMMUNOGLOBULIN G\HYALURONIDASE RECOMBINANT HUMAN
     Indication: PRIMARY IMMUNODEFICIENCY SYNDROME
     Dosage: 30 G, 1X A MONTH
     Route: 065

REACTIONS (7)
  - Cystitis [Unknown]
  - Pyrexia [Unknown]
  - Erythema [Unknown]
  - Weight decreased [Unknown]
  - Abdominal pain upper [Unknown]
  - Sinus disorder [Unknown]
  - Sinusitis [Recovering/Resolving]
